FAERS Safety Report 9087931 (Version 1)
Quarter: 2013Q1

REPORT INFORMATION
  Report Type: Report from Study
  Country: US (occurrence: US)
  Receive Date: 20130201
  Receipt Date: 20130201
  Transmission Date: 20140127
  Serious: No
  Sender: FDA-Public Use
  Company Number: US-ABBOTT-12P-163-1025130-00

PATIENT
  Age: 77 Year
  Sex: Male
  Weight: 90.8 kg

DRUGS (12)
  1. HUMIRA [Suspect]
     Indication: PSORIASIS
     Dates: start: 20121119, end: 20121119
  2. HUMIRA [Suspect]
     Indication: PSORIATIC ARTHROPATHY
     Dates: start: 20121126
  3. ASPIRIN [Concomitant]
     Indication: CARDIAC DISORDER
     Dosage: 81MG DAILY
  4. IBUPROFEN [Concomitant]
     Indication: PRODUCT USED FOR UNKNOWN INDICATION
  5. METOPROLOL [Concomitant]
     Indication: ILL-DEFINED DISORDER
  6. LOSARTAN [Concomitant]
     Indication: HYPERTENSION
  7. UNKNOWN THYROID MEDICATION [Concomitant]
     Indication: THYROID DISORDER
  8. LANSOPRAZOLE [Concomitant]
     Indication: GASTROOESOPHAGEAL REFLUX DISEASE
  9. SIMVASTATIN [Concomitant]
     Indication: CARDIAC DISORDER
  10. FENASTERIDE [Concomitant]
     Indication: PROSTATIC DISORDER
  11. FAMOTIDINE [Concomitant]
     Indication: GASTROOESOPHAGEAL REFLUX DISEASE
  12. IRON [Concomitant]
     Indication: BLOOD IRON DECREASED

REACTIONS (4)
  - Throat irritation [Recovering/Resolving]
  - Nasopharyngitis [Not Recovered/Not Resolved]
  - Nasal congestion [Not Recovered/Not Resolved]
  - Cough [Not Recovered/Not Resolved]
